FAERS Safety Report 8512414-9 (Version None)
Quarter: 2012Q3

REPORT INFORMATION
  Report Type: 
  Country: None (occurrence: None)
  Receive Date: 20120716
  Receipt Date: 20120713
  Transmission Date: 20120928
  Serious: Yes (Death)
  Sender: FDA-Public Use
  Company Number: AU-B.I. PHARMACEUTICALS,INC./RIDGEFIELD-2012-AU-01162AU

PATIENT
  Sex: Female

DRUGS (7)
  1. VITAMIN D [Concomitant]
  2. ACETAMINOPHEN [Concomitant]
  3. PRADAXA [Suspect]
     Indication: ATRIAL FIBRILLATION
  4. FELODUR [Concomitant]
  5. PRADAXA [Suspect]
     Indication: CEREBROVASCULAR ACCIDENT PROPHYLAXIS
     Dates: start: 20110828
  6. IRBESARTAN AND HYDROCHLOROTHIAZIDE [Concomitant]
     Dosage: 300/12.5MG
  7. NEXIUM [Concomitant]

REACTIONS (2)
  - ANAEMIA [None]
  - MYOCARDIAL INFARCTION [None]
